FAERS Safety Report 5930032-3 (Version None)
Quarter: 2008Q4

REPORT INFORMATION
  Report Type: 
  Country: None (occurrence: None)
  Receive Date: 20081024
  Receipt Date: 20081013
  Transmission Date: 20090506
  Serious: Yes (Hospitalization)
  Sender: FDA-Public Use
  Company Number: GB-PFIZER INC-2008086298

PATIENT
  Age: 48 Year
  Sex: Female

DRUGS (4)
  1. PREGABALIN [Suspect]
     Indication: TRIGEMINAL NEURALGIA
     Route: 048
     Dates: start: 20080817, end: 20080829
  2. CARBAMAZEPINE [Concomitant]
     Indication: NEURALGIA
     Route: 048
  3. CITALOPRAM HYDROBROMIDE [Concomitant]
     Indication: DEPRESSION
     Dosage: DAILY DOSE:10MG-FREQ:DAILY
     Route: 048
  4. PHENYTOIN [Concomitant]
     Indication: NEURALGIA
     Route: 048

REACTIONS (9)
  - CONFUSIONAL STATE [None]
  - DIPLOPIA [None]
  - DISORIENTATION [None]
  - DIZZINESS [None]
  - DYSSTASIA [None]
  - FALL [None]
  - SPEECH DISORDER [None]
  - VISION BLURRED [None]
  - VISUAL IMPAIRMENT [None]
